FAERS Safety Report 9744053 (Version 1)
Quarter: 2013Q4

REPORT INFORMATION
  Report Type: Spontaneous
  Country: US (occurrence: US)
  Receive Date: 20131210
  Receipt Date: 20131210
  Transmission Date: 20140711
  Serious: Yes (Hospitalization)
  Sender: FDA-Public Use
  Company Number: US-PFIZER INC-2013349906

PATIENT
  Age: 58 Year
  Sex: Male

DRUGS (1)
  1. VFEND [Suspect]
     Dosage: 200 MG, UNK
     Dates: start: 20130610

REACTIONS (1)
  - Neoplasm malignant [Unknown]
